FAERS Safety Report 9925767 (Version 1)
Quarter: 2014Q1

REPORT INFORMATION
  Report Type: Spontaneous
  Country: FR (occurrence: FR)
  Receive Date: 20140226
  Receipt Date: 20140226
  Transmission Date: 20141002
  Serious: Yes (Other)
  Sender: FDA-Public Use
  Company Number: FR-B.I. PHARMACEUTICALS,INC./RIDGEFIELD-2014-BI-07572FF

PATIENT
  Age: 70 Year
  Sex: Male

DRUGS (3)
  1. SIFROL [Suspect]
     Indication: PARKINSON^S DISEASE
     Dosage: DOSE PER APPLICATION:0.26 IN THE MORNING AND 0.52 IN THE MORNING AND IN THE EVENING.
     Route: 048
  2. TERCIAN [Suspect]
     Indication: SEDATION
     Dosage: 100 MG
     Route: 048
     Dates: start: 20131124
  3. SERESTA 100MG [Suspect]
     Indication: SEDATION
     Route: 065
     Dates: start: 20131124

REACTIONS (1)
  - Coma [Recovered/Resolved]
